FAERS Safety Report 10392772 (Version 63)
Quarter: 2020Q4

REPORT INFORMATION
  Report Type: Other
  Country: CA (occurrence: CA)
  Receive Date: 20140819
  Receipt Date: 20201228
  Transmission Date: 20210113
  Serious: Yes (Hospitalization, Other)
  Sender: FDA-Public Use
  Company Number: CA-ROCHE-1448798

PATIENT
  Age: 77 Year
  Sex: Female
  Weight: 65 kg

DRUGS (27)
  1. APO-AMLODIPINE [Suspect]
     Active Substance: AMLODIPINE BESYLATE
     Indication: HYPERTENSION
     Route: 065
     Dates: end: 20150501
  2. COENZYME Q-10;SODIUM CHLORIDE [Concomitant]
  3. XELJANZ [Suspect]
     Active Substance: TOFACITINIB CITRATE
     Indication: RHEUMATOID ARTHRITIS
     Route: 065
     Dates: start: 20141226
  4. OMEGA 3 [Concomitant]
     Active Substance: OMEGA-3 FATTY ACIDS
     Indication: PRODUCT USED FOR UNKNOWN INDICATION
  5. FOLIC ACID. [Concomitant]
     Active Substance: FOLIC ACID
     Indication: PRODUCT USED FOR UNKNOWN INDICATION
  6. ACTEMRA [Suspect]
     Active Substance: TOCILIZUMAB
     Indication: RHEUMATOID ARTHRITIS
     Route: 042
     Dates: start: 20150205, end: 20150205
  7. RITUXAN [Suspect]
     Active Substance: RITUXIMAB
     Route: 042
     Dates: start: 20150205, end: 20150205
  8. RITUXAN [Suspect]
     Active Substance: RITUXIMAB
     Route: 042
     Dates: start: 20170223
  9. ACLASTA [Concomitant]
     Active Substance: ZOLEDRONIC ACID
  10. RITUXAN [Suspect]
     Active Substance: RITUXIMAB
     Indication: RHEUMATOID ARTHRITIS
     Route: 042
     Dates: start: 20100311, end: 20100324
  11. RITUXAN [Suspect]
     Active Substance: RITUXIMAB
     Dosage: NO PIRS RECEIVED 05-DEC-2016 TO 29-MAY-2018
     Route: 042
     Dates: start: 20200309
  12. TYLENOL [Concomitant]
     Active Substance: ACETAMINOPHEN
  13. CONJUGATED LINOLEIC ACID [Concomitant]
     Active Substance: LINOLEIC ACID, CONJUGATED
  14. KETOPROFEN. [Concomitant]
     Active Substance: KETOPROFEN
     Indication: PRODUCT USED FOR UNKNOWN INDICATION
  15. ACTEMRA [Suspect]
     Active Substance: TOCILIZUMAB
     Dosage: PIR RECEIVED 05/DEC/2016 TO 29/MAY/2018
     Route: 042
  16. RITUXAN [Suspect]
     Active Substance: RITUXIMAB
     Dosage: ONGOING;NO PIRS RECEIVED 05-DEC-2016 TO 29-MAY-2018 B2095 31-OCT-2021
     Route: 042
  17. NAPROSYN [Suspect]
     Active Substance: NAPROXEN
     Indication: PRODUCT USED FOR UNKNOWN INDICATION
     Route: 065
  18. ACTEMRA [Suspect]
     Active Substance: TOCILIZUMAB
     Route: 042
     Dates: start: 20150309
  19. SYNTHROID [Concomitant]
     Active Substance: LEVOTHYROXINE SODIUM
     Indication: PRODUCT USED FOR UNKNOWN INDICATION
  20. PANTOPRAZOLE [Concomitant]
     Active Substance: PANTOPRAZOLE
     Indication: PRODUCT USED FOR UNKNOWN INDICATION
  21. KETOPROFEN. [Concomitant]
     Active Substance: KETOPROFEN
  22. SIMPONI [Concomitant]
     Active Substance: GOLIMUMAB
  23. ACTEMRA [Suspect]
     Active Substance: TOCILIZUMAB
     Route: 042
     Dates: start: 20170223
  24. OXYCOCET [Concomitant]
     Active Substance: ACETAMINOPHEN\OXYCODONE HYDROCHLORIDE
     Indication: PRODUCT USED FOR UNKNOWN INDICATION
  25. PREDNISONE. [Suspect]
     Active Substance: PREDNISONE
     Indication: PRODUCT USED FOR UNKNOWN INDICATION
     Route: 065
  26. SIMPONI [Concomitant]
     Active Substance: GOLIMUMAB
     Indication: PRODUCT USED FOR UNKNOWN INDICATION
  27. EPIPEN [Concomitant]
     Active Substance: EPINEPHRINE
     Route: 065

REACTIONS (57)
  - Cerebrovascular accident [Unknown]
  - Cerebrovascular accident [Unknown]
  - Clostridium difficile infection [Unknown]
  - Alopecia [Unknown]
  - Palpitations [Unknown]
  - Drug hypersensitivity [Unknown]
  - Incorrect dose administered [Unknown]
  - Arthritis infective [Recovered/Resolved]
  - Arthralgia [Recovering/Resolving]
  - Asthenia [Unknown]
  - Scratch [Unknown]
  - Blood pressure systolic decreased [Unknown]
  - Decubitus ulcer [Unknown]
  - Heart rate decreased [Unknown]
  - Blood pressure systolic increased [Unknown]
  - Disability assessment scale score increased [Recovering/Resolving]
  - Oxygen saturation decreased [Unknown]
  - Discharge [Unknown]
  - Blood pressure diastolic abnormal [Unknown]
  - Product use issue [Unknown]
  - Infusion related reaction [Recovered/Resolved]
  - Fall [Unknown]
  - Oropharyngeal pain [Recovering/Resolving]
  - Peripheral swelling [Unknown]
  - Urinary tract infection [Unknown]
  - Hypertension [Unknown]
  - Blood pressure increased [Unknown]
  - Contusion [Unknown]
  - Weight decreased [Not Recovered/Not Resolved]
  - Pulmonary mass [Unknown]
  - Staphylococcal infection [Not Recovered/Not Resolved]
  - Pain [Not Recovered/Not Resolved]
  - Rash [Unknown]
  - Cystitis [Recovered/Resolved]
  - Decreased appetite [Unknown]
  - Hand deformity [Unknown]
  - Hypoaesthesia oral [Unknown]
  - Fracture [Unknown]
  - Dizziness [Unknown]
  - Blood pressure systolic abnormal [Unknown]
  - Weight increased [Unknown]
  - Arthralgia [Not Recovered/Not Resolved]
  - Urinary tract infection [Recovered/Resolved]
  - Heart rate increased [Unknown]
  - Drug ineffective [Unknown]
  - Rhinorrhoea [Recovering/Resolving]
  - Blood pressure increased [Unknown]
  - Blood pressure diastolic decreased [Not Recovered/Not Resolved]
  - Gingival disorder [Unknown]
  - Eye infection [Recovering/Resolving]
  - Fall [Unknown]
  - Dyspnoea [Unknown]
  - Pain in extremity [Recovering/Resolving]
  - Dizziness [Unknown]
  - Nasopharyngitis [Not Recovered/Not Resolved]
  - Off label use [Unknown]
  - Body temperature decreased [Unknown]

NARRATIVE: CASE EVENT DATE: 2015
